FAERS Safety Report 23730176 (Version 3)
Quarter: 2024Q2

REPORT INFORMATION
  Report Type: Spontaneous
  Country: US (occurrence: None)
  Receive Date: 20240411
  Receipt Date: 20240427
  Transmission Date: 20240716
  Serious: Yes (Hospitalization)
  Sender: FDA-Public Use
  Company Number: US-ROCHE-3538883

PATIENT
  Sex: Female

DRUGS (5)
  1. XOLAIR [Suspect]
     Active Substance: OMALIZUMAB
     Indication: Urticaria
     Route: 058
     Dates: start: 202107
  2. KESIMPTA [Concomitant]
     Active Substance: OFATUMUMAB
  3. AJOVY [Concomitant]
     Active Substance: FREMANEZUMAB-VFRM
  4. STERILE WATER [Concomitant]
     Active Substance: WATER
  5. DALFAMPRIDINE [Concomitant]
     Active Substance: DALFAMPRIDINE

REACTIONS (6)
  - Illness [Unknown]
  - Off label use [Unknown]
  - Multiple sclerosis relapse [Unknown]
  - Nausea [Unknown]
  - Vomiting [Unknown]
  - Pain [Unknown]
